FAERS Safety Report 5326309-5 (Version None)
Quarter: 2007Q2

REPORT INFORMATION
  Report Type: 
  Country: None (occurrence: None)
  Receive Date: 20070514
  Receipt Date: 20070514
  Transmission Date: 20071010
  Serious: Yes (Hospitalization)
  Sender: FDA-Public Use
  Company Number: None

PATIENT
  Age: 63 Year
  Sex: Male

DRUGS (2)
  1. HEPARIN [Suspect]
     Indication: ACUTE MYOCARDIAL INFARCTION
     Dosage: DRIP CONTINUOUS IV
     Route: 042
     Dates: start: 20070209, end: 20070212
  2. HEPARIN [Suspect]
     Indication: ATRIAL FIBRILLATION
     Dosage: DRIP CONTINUOUS IV
     Route: 042
     Dates: start: 20070209, end: 20070212

REACTIONS (2)
  - DEEP VEIN THROMBOSIS [None]
  - HEPARIN-INDUCED THROMBOCYTOPENIA [None]
